FAERS Safety Report 9110207 (Version 3)
Quarter: 2013Q3

REPORT INFORMATION
  Report Type: Report from Study
  Country: US (occurrence: US)
  Receive Date: 20130222
  Receipt Date: 20130722
  Transmission Date: 20140515
  Serious: Yes (Other)
  Sender: FDA-Public Use
  Company Number: US-US-EMD SERONO, INC.-7193870

PATIENT
  Age: 13 Year
  Sex: Male
  Weight: 37 kg

DRUGS (5)
  1. SAIZEN [Suspect]
     Indication: GROWTH HORMONE DEFICIENCY
     Dates: start: 20110307
  2. SAIZEN [Suspect]
     Dates: start: 201201, end: 201204
  3. SAIZEN [Suspect]
     Dates: start: 201209
  4. VALIUM [Concomitant]
     Indication: MUSCLE SPASMS
  5. HYDROCODONE [Concomitant]
     Indication: PRODUCT USED FOR UNKNOWN INDICATION

REACTIONS (3)
  - Scoliosis [Recovered/Resolved]
  - Wrist fracture [Unknown]
  - Lymph node palpable [Not Recovered/Not Resolved]
